FAERS Safety Report 24884374 (Version 1)
Quarter: 2025Q1

REPORT INFORMATION
  Report Type: Spontaneous
  Country: FI (occurrence: FI)
  Receive Date: 20250124
  Receipt Date: 20250124
  Transmission Date: 20250408
  Serious: Yes (Death, Hospitalization, Other)
  Sender: NORDIC PHARMA
  Company Number: None

PATIENT
  Age: 62 Year
  Sex: Male

DRUGS (3)
  1. METHOTREXATE [Suspect]
     Active Substance: METHOTREXATE
     Indication: Polymyositis
     Dosage: 1 ANNOSKYN?LLINEN KERRAN VIIKOSSA /?1 PEN DOSE ONCE A WEEK
     Route: 058
  2. CYCLOSPORINE [Concomitant]
     Active Substance: CYCLOSPORINE
     Indication: Polymyositis
     Dosage: 50 MG AAMUIN JA 100 MG ILLOIN PARITTOMINA P?IVIN? JA 50 MG AAMUIN ILLOIN PARILLISINA P?IVIN? /?ON...
     Route: 048
  3. CYCLOSPORINE [Concomitant]
     Active Substance: CYCLOSPORINE
     Indication: Polymyositis
     Dosage: 50 MG AAMUIN JA 100 MG ILLOIN PARITTOMINA P?IVIN? JA 50 MG AAMUIN ILLOIN PARILLISINA P?IVIN? /?ON...
     Route: 048

REACTIONS (8)
  - Campylobacter gastroenteritis [Fatal]
  - Sepsis [Not Recovered/Not Resolved]
  - Respiratory moniliasis [Not Recovered/Not Resolved]
  - Cardiac arrest [Recovered/Resolved]
  - Myelosuppression [Fatal]
  - Prescribed overdose [Unknown]
  - Multiple organ dysfunction syndrome [Not Recovered/Not Resolved]
  - Product use in unapproved indication [Unknown]

NARRATIVE: CASE EVENT DATE: 20240801
